FAERS Safety Report 6077986-5 (Version None)
Quarter: 2009Q1

REPORT INFORMATION
  Report Type: 
  Country: None (occurrence: None)
  Receive Date: 20090213
  Receipt Date: 20090206
  Transmission Date: 20090719
  Serious: Yes (Hospitalization, Other)
  Sender: FDA-Public Use
  Company Number: US-ELI_LILLY_AND_COMPANY-US200902001666

PATIENT
  Sex: Female

DRUGS (6)
  1. HUMALOG [Suspect]
  2. HUMULIN N [Suspect]
  3. PREDNISONE [Concomitant]
  4. SYNTHROID [Concomitant]
  5. VASOTEC [Concomitant]
  6. CYCLOSPORINE [Concomitant]

REACTIONS (5)
  - BLOOD GLUCOSE INCREASED [None]
  - DIALYSIS [None]
  - INJECTION SITE HAEMATOMA [None]
  - RENAL FAILURE [None]
  - RENAL TRANSPLANT [None]
